FAERS Safety Report 16201742 (Version 1)
Quarter: 2019Q2

REPORT INFORMATION
  Report Type: Spontaneous
  Country: US (occurrence: US)
  Receive Date: 20190416
  Receipt Date: 20190416
  Transmission Date: 20190711
  Serious: Yes (Other)
  Sender: FDA-Public Use
  Company Number: US-LUPIN PHARMACEUTICALS INC.-2019-02330

PATIENT
  Age: 31 Year
  Sex: Male
  Weight: 113.38 kg

DRUGS (1)
  1. LISINOPRIL TABLETS USP, 20MG [Suspect]
     Active Substance: LISINOPRIL
     Indication: HYPERTENSION
     Dosage: 20 MILLIGRAM, BID
     Route: 048
     Dates: start: 20190323, end: 20190327

REACTIONS (5)
  - Hypertension [Unknown]
  - Nausea [Recovered/Resolved]
  - Vomiting [Recovered/Resolved]
  - Diarrhoea [Recovered/Resolved]
  - Heart rate increased [Unknown]

NARRATIVE: CASE EVENT DATE: 20190324
